FAERS Safety Report 6317827-1 (Version None)
Quarter: 2009Q3

REPORT INFORMATION
  Report Type: 
  Country: None (occurrence: None)
  Receive Date: 20090821
  Receipt Date: 20090604
  Transmission Date: 20100115
  Serious: No
  Sender: FDA-Public Use
  Company Number: US-BAYER-200922811NA

PATIENT
  Age: 39 Year
  Sex: Female
  Weight: 54 kg

DRUGS (5)
  1. YAZ [Suspect]
     Indication: ENDOMETRIOSIS
     Route: 048
     Dates: start: 20081101
  2. VICODIN [Concomitant]
  3. IBUPROFEN [Concomitant]
  4. SINGULAIR [Concomitant]
  5. SKELAXIN [Concomitant]

REACTIONS (4)
  - ACNE [None]
  - MOOD SWINGS [None]
  - OFF LABEL USE [None]
  - VAGINAL HAEMORRHAGE [None]
